FAERS Safety Report 23199928 (Version 2)
Quarter: 2024Q1

REPORT INFORMATION
  Report Type: Spontaneous
  Country: IN (occurrence: IN)
  Receive Date: 20231117
  Receipt Date: 20240302
  Transmission Date: 20240410
  Serious: Yes (Hospitalization)
  Sender: FDA-Public Use
  Company Number: IN-SANDOZ-SDZ2023IN055214

PATIENT
  Sex: Male

DRUGS (2)
  1. MYFORTIC [Suspect]
     Active Substance: MYCOPHENOLATE SODIUM
     Indication: Product used for unknown indication
     Dosage: 360 MG, TID
     Route: 048
  2. TACROLIMUS [Suspect]
     Active Substance: TACROLIMUS
     Indication: Product used for unknown indication
     Dosage: 2 MG, BID
     Route: 048

REACTIONS (5)
  - Hypercalcaemia of malignancy [Unknown]
  - Pyrexia [Unknown]
  - Laboratory test abnormal [Unknown]
  - Asthenia [Unknown]
  - Hypertension [Unknown]
